FAERS Safety Report 19784051 (Version 3)
Quarter: 2021Q4

REPORT INFORMATION
  Report Type: Report from Study
  Country: None (occurrence: CA)
  Receive Date: 20210903
  Receipt Date: 20211001
  Transmission Date: 20220303
  Serious: Yes (Death, Hospitalization, Other)
  Sender: FDA-Public Use
  Company Number: CA-ABBVIE-21K-028-4065978-00

PATIENT
  Age: 85 Year
  Sex: Male
  Weight: 63.56 kg

DRUGS (3)
  1. CARBIDOPA\LEVODOPA [Suspect]
     Active Substance: CARBIDOPA\LEVODOPA
     Indication: Parkinson^s disease
     Dosage: LEVODOPA20MG/ML,CARBIDOPAMONOHYDRATE5MG/ML, 20 MG/ML 5 MG/ML
     Route: 050
     Dates: start: 20160623
  2. CARBIDOPA\LEVODOPA [Suspect]
     Active Substance: CARBIDOPA\LEVODOPA
  3. LEVODOPA [Concomitant]
     Active Substance: LEVODOPA
     Indication: Product used for unknown indication
     Route: 048
     Dates: start: 20210819

REACTIONS (10)
  - Death [Fatal]
  - General physical health deterioration [Recovering/Resolving]
  - Pulmonary necrosis [Unknown]
  - Subclavian vein thrombosis [Unknown]
  - Nasopharyngitis [Recovering/Resolving]
  - Pulmonary mass [Unknown]
  - Lung consolidation [Unknown]
  - Enterococcus test positive [Unknown]
  - Inflammation [Unknown]
  - Device occlusion [Recovered/Resolved]

NARRATIVE: CASE EVENT DATE: 20210819
